FAERS Safety Report 9758868 (Version 1)
Quarter: 2013Q4

REPORT INFORMATION
  Report Type: Spontaneous
  Country: US (occurrence: None)
  Receive Date: 20131216
  Receipt Date: 20131216
  Transmission Date: 20140711
  Serious: Yes (Death)
  Sender: FDA-Public Use
  Company Number: 2013020115(0)

PATIENT
  Age: 89 Year
  Sex: Female

DRUGS (1)
  1. MEPROBAMATE (MEPROBAMATE) [Suspect]
     Dosage: ORAL
     Route: 048

REACTIONS (1)
  - Intentional drug misuse [None]
